FAERS Safety Report 19751855 (Version 1)
Quarter: 2021Q3

REPORT INFORMATION
  Report Type: Spontaneous
  Country: US (occurrence: US)
  Receive Date: 20210827
  Receipt Date: 20210827
  Transmission Date: 20211014
  Serious: No
  Sender: FDA-Public Use
  Company Number: US-DRREDDYS-SPO/USA/21/0139366

PATIENT
  Age: 66 Year
  Sex: Male
  Weight: 75.6 kg

DRUGS (1)
  1. FEXOFENADINE HCL 60 MG AND PSEUDOEPHEDRINE HCL ER 120 MG [Suspect]
     Active Substance: FEXOFENADINE HYDROCHLORIDE\PSEUDOEPHEDRINE HYDROCHLORIDE
     Indication: SINUS DISORDER
     Dosage: 60/120 MG
     Dates: start: 20210820, end: 20210822

REACTIONS (5)
  - Product quality issue [Unknown]
  - Product residue present [Unknown]
  - Product administration error [Unknown]
  - Product use in unapproved indication [Unknown]
  - Drug ineffective [Unknown]
